FAERS Safety Report 8426574-1 (Version None)
Quarter: 2012Q2

REPORT INFORMATION
  Report Type: 
  Country: None (occurrence: None)
  Receive Date: 20120611
  Receipt Date: 20120604
  Transmission Date: 20120825
  Serious: Yes (Disabling)
  Sender: FDA-Public Use
  Company Number: CA-SANOFI-AVENTIS-2012SA040244

PATIENT
  Age: 48 Year
  Sex: Female

DRUGS (3)
  1. LANTUS [Suspect]
     Dosage: DOSE:10 UNIT(S)
     Route: 058
     Dates: start: 20120103, end: 20120524
  2. NOVORAPID [Concomitant]
     Dosage: DOSE: 3 TO 7 UNITS WITH MEALS
     Route: 058
     Dates: start: 20120103
  3. NPH INSULIN [Concomitant]

REACTIONS (4)
  - INSOMNIA [None]
  - ACTIVITIES OF DAILY LIVING IMPAIRED [None]
  - ABDOMINAL PAIN [None]
  - RASH [None]
